FAERS Safety Report 7809149-4 (Version None)
Quarter: 2011Q4

REPORT INFORMATION
  Report Type: 
  Country: None (occurrence: None)
  Receive Date: 20111012
  Receipt Date: 20110204
  Transmission Date: 20120403
  Serious: Yes (Other)
  Sender: FDA-Public Use
  Company Number: GB-UCBSA-025338

PATIENT
  Age: 21 Year
  Sex: Female

DRUGS (5)
  1. AMOXICILLIN [Suspect]
     Indication: URINARY TRACT INFECTION
  2. ACETAMINOPHEN AND CODEINE PHOSPHATE [Suspect]
     Indication: ARTHRALGIA
  3. ACETAMINOPHEN [Suspect]
     Indication: ARTHRALGIA
     Dosage: APPROXIMATELY 3G/DAY
  4. ERYTHROMYCIN [Suspect]
     Indication: LOWER RESPIRATORY TRACT INFECTION
  5. AMOXICILLIN [Suspect]
     Indication: LOWER RESPIRATORY TRACT INFECTION

REACTIONS (24)
  - HEADACHE [None]
  - PYROGLUTAMATE INCREASED [None]
  - NEUTROPHILIA [None]
  - VOMITING [None]
  - URINARY TRACT INFECTION [None]
  - CAESAREAN SECTION [None]
  - WHITE BLOOD CELL COUNT INCREASED [None]
  - PREGNANCY [None]
  - WHEEZING [None]
  - METABOLIC ACIDOSIS [None]
  - MALNUTRITION [None]
  - BACK PAIN [None]
  - RESPIRATORY RATE INCREASED [None]
  - MACROCYTOSIS [None]
  - ANISOCYTOSIS [None]
  - MEAN CELL VOLUME INCREASED [None]
  - KETONURIA [None]
  - DYSPNOEA [None]
  - LOWER RESPIRATORY TRACT INFECTION [None]
  - BLOOD ALKALINE PHOSPHATASE INCREASED [None]
  - HAEMOPHILUS INFECTION [None]
  - MUSCULOSKELETAL CHEST PAIN [None]
  - DECREASED APPETITE [None]
  - GAMMA-GLUTAMYLTRANSFERASE INCREASED [None]
